FAERS Safety Report 16835380 (Version 1)
Quarter: 2019Q3

REPORT INFORMATION
  Report Type: Spontaneous
  Country: US (occurrence: US)
  Receive Date: 20190920
  Receipt Date: 20190920
  Transmission Date: 20191005
  Serious: No
  Sender: FDA-Public Use
  Company Number: US-AMARIN PHARMA, INC.-2018AMR000253

PATIENT
  Age: 42 Year
  Sex: Female
  Weight: 52.21 kg

DRUGS (2)
  1. VASCEPA [Suspect]
     Active Substance: ICOSAPENT ETHYL
     Indication: PRODUCT USED FOR UNKNOWN INDICATION
     Dates: start: 2015
  2. MULTIVITAMIN [Concomitant]
     Active Substance: VITAMINS
     Indication: PRODUCT USED FOR UNKNOWN INDICATION

REACTIONS (3)
  - Product taste abnormal [Unknown]
  - Product odour abnormal [Unknown]
  - Off label use [Not Recovered/Not Resolved]

NARRATIVE: CASE EVENT DATE: 20181001
